FAERS Safety Report 7650602-4 (Version None)
Quarter: 2011Q3

REPORT INFORMATION
  Report Type: 
  Country: None (occurrence: None)
  Receive Date: 20110802
  Receipt Date: 20110722
  Transmission Date: 20111222
  Serious: Yes (Hospitalization, Other)
  Sender: FDA-Public Use
  Company Number: US-BAYER-201040558NA

PATIENT
  Age: 30 Year
  Sex: Female
  Weight: 104.31 kg

DRUGS (4)
  1. PROPRANOLOL [Concomitant]
     Indication: MIGRAINE
     Dosage: UNK
     Dates: start: 19990101, end: 20050101
  2. YASMIN [Suspect]
     Indication: CONTRACEPTION
     Dosage: UNK UNK, QD
     Route: 048
     Dates: start: 19980401, end: 20090601
  3. LEXAPRO [Concomitant]
     Indication: ANXIETY
     Dosage: UNK
     Dates: start: 19990101
  4. DROSPIRENONE AND ETHINYL ESTRADIOL [Suspect]
     Indication: CONTRACEPTION
     Dosage: UNK UNK, QD
     Route: 048
     Dates: start: 19980401, end: 20090601

REACTIONS (8)
  - CHOLELITHIASIS [None]
  - PAIN [None]
  - COLITIS [None]
  - BILE DUCT STONE [None]
  - CHOLECYSTITIS CHRONIC [None]
  - PANCREATITIS [None]
  - INFECTION [None]
  - GALLBLADDER DISORDER [None]
